FAERS Safety Report 20173167 (Version 2)
Quarter: 2021Q4

REPORT INFORMATION
  Report Type: Spontaneous
  Country: TW (occurrence: TW)
  Receive Date: 20211211
  Receipt Date: 20211223
  Transmission Date: 20220303
  Serious: Yes (Hospitalization, Other)
  Sender: FDA-Public Use
  Company Number: TW-NOVARTISPH-NVSC2021TW282162

PATIENT
  Age: 19 Year
  Sex: Male

DRUGS (7)
  1. GLIVEC [Suspect]
     Active Substance: IMATINIB MESYLATE
     Indication: Philadelphia positive chronic myeloid leukaemia
     Dosage: 400 MG, QD AND THEN DISCONTINUED FOR 8 DAYS
     Route: 048
  2. GLIVEC [Suspect]
     Active Substance: IMATINIB MESYLATE
     Dosage: 400 MG, QD
     Route: 048
  3. GLIVEC [Suspect]
     Active Substance: IMATINIB MESYLATE
     Dosage: 600 MG, QD (DOSE INCREASED)
     Route: 048
  4. GLIVEC [Suspect]
     Active Substance: IMATINIB MESYLATE
     Dosage: 400 MG, QD (ADJUSTED DOSE)
     Route: 048
  5. GLIVEC [Suspect]
     Active Substance: IMATINIB MESYLATE
     Dosage: 5 TABLETS (100X5) 500 MG, QD (DOSE INCREASED)
     Route: 048
     Dates: start: 20161217, end: 20201005
  6. GLIVEC [Suspect]
     Active Substance: IMATINIB MESYLATE
     Dosage: 200 MG, QD (RE-ADMINISTRED)
     Route: 048
  7. GLIVEC [Suspect]
     Active Substance: IMATINIB MESYLATE
     Dosage: 400 MG, QD
     Route: 048

REACTIONS (5)
  - Campylobacter infection [Recovered/Resolved]
  - Pericardial effusion [Recovered/Resolved]
  - Pleural effusion [Recovered/Resolved]
  - Leukopenia [Unknown]
  - Neutropenia [Unknown]
